FAERS Safety Report 5404385-9 (Version None)
Quarter: 2007Q3

REPORT INFORMATION
  Report Type: 
  Country: None (occurrence: None)
  Receive Date: 20070802
  Receipt Date: 20070724
  Transmission Date: 20080115
  Serious: Yes (Death, Hospitalization)
  Sender: FDA-Public Use
  Company Number: PL-PFIZER INC-2007048186

PATIENT
  Sex: Male
  Weight: 73 kg

DRUGS (14)
  1. SU-011,248 [Suspect]
     Indication: RENAL CELL CARCINOMA STAGE UNSPECIFIED
     Route: 048
     Dates: start: 20060718, end: 20060814
  2. SU-011,248 [Suspect]
     Route: 048
     Dates: start: 20060824, end: 20060920
  3. BETALOC [Concomitant]
     Route: 048
  4. ENARENAL [Concomitant]
     Route: 048
  5. INDAPAMIDE [Concomitant]
     Route: 048
  6. CLEXANE [Concomitant]
     Route: 058
  7. LACTULOSE [Concomitant]
     Route: 048
  8. METOCLOPRAMIDE [Concomitant]
     Route: 048
  9. DURAGESIC-100 [Concomitant]
     Route: 062
  10. MORPHINE SULFATE [Concomitant]
     Route: 048
  11. OMNIC [Concomitant]
     Route: 048
  12. IMOVANE [Concomitant]
     Route: 048
  13. ESPUMISAN [Concomitant]
     Route: 048
  14. DOXEPIN HCL [Concomitant]
     Route: 048

REACTIONS (3)
  - ANAEMIA [None]
  - DEATH [None]
  - PNEUMONIA [None]
